FAERS Safety Report 6832159-0 (Version None)
Quarter: 2010Q2

REPORT INFORMATION
  Report Type: 
  Country: None (occurrence: None)
  Receive Date: 20100629
  Receipt Date: 20100618
  Transmission Date: 20101027
  Serious: Yes (Other)
  Sender: FDA-Public Use
  Company Number: US-145001

PATIENT

DRUGS (1)
  1. WINRHO SDF LIQUID [Suspect]
     Indication: IDIOPATHIC THROMBOCYTOPENIC PURPURA
     Dosage: (75 ?G/KG INTRAVENOUS))
     Route: 042

REACTIONS (3)
  - HAEMOGLOBIN DECREASED [None]
  - OVERDOSE [None]
  - RENAL FAILURE ACUTE [None]
